FAERS Safety Report 9996389 (Version 1)
Quarter: 2014Q1

REPORT INFORMATION
  Report Type: Spontaneous
  Country: US (occurrence: None)
  Receive Date: 20140219
  Receipt Date: 20140219
  Transmission Date: 20141002
  Serious: Yes (Hospitalization)
  Sender: FDA-Public Use
  Company Number: 13US006774

PATIENT
  Age: 79 Year
  Sex: Male
  Weight: 98.4 kg

DRUGS (2)
  1. FLAVOXATE HYDROCHLORIDE [Suspect]
     Indication: INCONTINENCE
     Route: 048
     Dates: start: 201305, end: 201305
  2. FLAVOXATE HYDROCHLORIDE [Suspect]
     Indication: POST PROCEDURAL COMPLICATION
     Route: 048
     Dates: start: 201305, end: 201305

REACTIONS (1)
  - Dysuria [None]
